FAERS Safety Report 11514369 (Version 2)
Quarter: 2015Q4

REPORT INFORMATION
  Report Type: Other
  Country: US (occurrence: US)
  Receive Date: 20150916
  Receipt Date: 20151104
  Transmission Date: 20160304
  Serious: No
  Sender: FDA-Public Use
  Company Number: US-SHIRE-US201511635

PATIENT
  Age: 30 Year
  Sex: Female

DRUGS (2)
  1. VPRIV [Suspect]
     Active Substance: VELAGLUCERASE ALFA
     Dosage: UNK, UNKNOWN
     Route: 041
     Dates: start: 20111021
  2. VPRIV [Suspect]
     Active Substance: VELAGLUCERASE ALFA
     Indication: GAUCHER^S DISEASE
     Dosage: 5600 IU, 1X/2WKS
     Route: 041
     Dates: start: 20130520

REACTIONS (4)
  - Pain [Unknown]
  - Nodule [Unknown]
  - Nausea [Unknown]
  - Activities of daily living impaired [Unknown]

NARRATIVE: CASE EVENT DATE: 20150811
